FAERS Safety Report 15016498 (Version 1)
Quarter: 2018Q2

REPORT INFORMATION
  Report Type: Report from Study
  Country: BR (occurrence: BR)
  Receive Date: 20180615
  Receipt Date: 20180615
  Transmission Date: 20180711
  Serious: Yes (Other)
  Sender: FDA-Public Use
  Company Number: BR-JNJFOC-20180618570

PATIENT
  Sex: Male
  Weight: 100 kg

DRUGS (7)
  1. ZOLPIDEM [Concomitant]
     Active Substance: ZOLPIDEM\ZOLPIDEM TARTRATE
     Indication: APNOEA
     Route: 065
  2. BETAMETHASONE. [Concomitant]
     Active Substance: BETAMETHASONE
     Route: 065
  3. PERCOF [Concomitant]
     Route: 048
  4. LOSARTAN. [Concomitant]
     Active Substance: LOSARTAN
     Route: 065
  5. KOIDE [Concomitant]
     Route: 065
  6. HYDROCHLOROTHIAZIDE. [Concomitant]
     Active Substance: HYDROCHLOROTHIAZIDE
     Route: 065
  7. SIMPONI [Suspect]
     Active Substance: GOLIMUMAB
     Indication: ANKYLOSING SPONDYLITIS
     Route: 058
     Dates: start: 20160712

REACTIONS (3)
  - Pneumonia [Unknown]
  - Influenza [Unknown]
  - Herpes zoster [Unknown]

NARRATIVE: CASE EVENT DATE: 2018
